FAERS Safety Report 9306487 (Version 2)
Quarter: 2013Q3

REPORT INFORMATION
  Report Type: Report from Study
  Country: CA (occurrence: CA)
  Receive Date: 20130523
  Receipt Date: 20130828
  Transmission Date: 20140515
  Serious: Yes (Other)
  Sender: FDA-Public Use
  Company Number: CA-JNJFOC-20130514811

PATIENT
  Age: 38 Year
  Sex: Male
  Weight: 105.24 kg

DRUGS (6)
  1. REMICADE [Suspect]
     Indication: PSORIASIS
     Route: 042
     Dates: start: 20130313
  2. REMICADE [Suspect]
     Indication: PSORIASIS
     Dosage: SECOND INFUSION
     Route: 042
     Dates: start: 20130514, end: 20130514
  3. REMICADE [Suspect]
     Indication: PSORIASIS
     Route: 042
     Dates: start: 20130305, end: 20130305
  4. SOLU CORTEF [Concomitant]
     Indication: PREMEDICATION
     Route: 042
     Dates: start: 20130514
  5. BENADRYL [Concomitant]
     Indication: PREMEDICATION
     Route: 042
     Dates: start: 20130514
  6. TYLENOL [Concomitant]
     Indication: PREMEDICATION
     Route: 065

REACTIONS (9)
  - Infusion related reaction [Unknown]
  - Speech disorder [Unknown]
  - Hyperhidrosis [Recovered/Resolved]
  - Chest pain [Recovered/Resolved]
  - Dyspnoea [Recovered/Resolved]
  - Erythema [Unknown]
  - Staring [Unknown]
  - Malaise [Unknown]
  - Confusional state [Recovered/Resolved]
